FAERS Safety Report 21875008 (Version 1)
Quarter: 2023Q1

REPORT INFORMATION
  Report Type: Spontaneous
  Country: US (occurrence: None)
  Receive Date: 20230117
  Receipt Date: 20230117
  Transmission Date: 20230417
  Serious: Yes (Other)
  Sender: FDA-Public Use
  Company Number: 2023A004920

PATIENT
  Age: 27009 Day
  Sex: Female
  Weight: 81.6 kg

DRUGS (2)
  1. BEVESPI AEROSPHERE [Suspect]
     Active Substance: FORMOTEROL FUMARATE\GLYCOPYRROLATE
     Indication: Asthma
     Dosage: 9MCG/4.8MC, 2 PUFFS TWICE A DAY9UG/MG TWO TIMES A DAY
     Route: 055
     Dates: start: 2019
  2. SYMBICORT [Suspect]
     Active Substance: BUDESONIDE\FORMOTEROL FUMARATE DIHYDRATE
     Indication: Asthma
     Dosage: 2 PUFFS TWICE A DAY
     Route: 055
     Dates: start: 2018

REACTIONS (6)
  - Upper limb fracture [Unknown]
  - Fall [Unknown]
  - Dysphonia [Unknown]
  - Fungal skin infection [Unknown]
  - Dysgraphia [Unknown]
  - Drug hypersensitivity [Unknown]

NARRATIVE: CASE EVENT DATE: 20221212
